FAERS Safety Report 20661187 (Version 1)
Quarter: 2022Q1

REPORT INFORMATION
  Report Type: Spontaneous
  Country: US (occurrence: None)
  Receive Date: 20220331
  Receipt Date: 20220331
  Transmission Date: 20220423
  Serious: No
  Sender: FDA-Public Use
  Company Number: 2022A126912

PATIENT
  Sex: Female

DRUGS (1)
  1. SYMBICORT [Suspect]
     Active Substance: BUDESONIDE\FORMOTEROL FUMARATE DIHYDRATE
     Indication: Chronic obstructive pulmonary disease
     Dosage: 1-2 RESPIRATORY INHALATIONS 2 TIMES A DAY
     Route: 055

REACTIONS (6)
  - Dysphonia [Not Recovered/Not Resolved]
  - Visual impairment [Unknown]
  - Device use issue [Not Recovered/Not Resolved]
  - Wrong technique in device usage process [Not Recovered/Not Resolved]
  - Device delivery system issue [Unknown]
  - Product label issue [Unknown]
